FAERS Safety Report 8439826-6 (Version None)
Quarter: 2012Q2

REPORT INFORMATION
  Report Type: 
  Country: None (occurrence: None)
  Receive Date: 20120615
  Receipt Date: 20120608
  Transmission Date: 20120825
  Serious: Yes (Other)
  Sender: FDA-Public Use
  Company Number: US-PFIZER INC-2012140019

PATIENT
  Weight: 106 kg

DRUGS (15)
  1. ALLOPURINOL [Concomitant]
  2. PLAVIX [Concomitant]
     Dosage: 75 MG, 1X/DAY
     Route: 048
  3. NITROSTAT [Suspect]
     Dosage: 0.4 MG, AS NEEDED
     Dates: start: 20120531
  4. LASIX [Concomitant]
  5. RANEXA [Concomitant]
     Dosage: 500 MG, 2X/DAY
     Route: 048
  6. ASPIR-LOW [Concomitant]
     Dosage: 81 MG, 1X/DAY
     Route: 048
  7. JANUVIA [Concomitant]
  8. GUANFACINE HYDROCHLORIDE [Concomitant]
  9. OYSCO [Concomitant]
  10. METOPROLOL TARTRATE [Concomitant]
     Dosage: 100 MG, 2X/DAY
     Route: 048
  11. LIPITOR [Suspect]
     Dosage: 20 MG, 1X/DAY
     Route: 048
  12. FAMOTIDINE [Concomitant]
     Dosage: 40 MG, 2X/DAY
     Route: 048
  13. NITROGLYCERIN [Concomitant]
     Indication: CHEST PAIN
     Dosage: 0.4 MG, AS NEEDED
     Route: 060
  14. SAVELLA [Concomitant]
  15. TERAZOSIN HYDROCHLORIDE [Concomitant]

REACTIONS (2)
  - DIZZINESS [None]
  - BLOOD PRESSURE INCREASED [None]
